FAERS Safety Report 9060540 (Version 4)
Quarter: 2013Q3

REPORT INFORMATION
  Report Type: Spontaneous
  Country: FR (occurrence: FR)
  Receive Date: 20130212
  Receipt Date: 20130910
  Transmission Date: 20140515
  Serious: Yes (Life-Threatening, Hospitalization)
  Sender: FDA-Public Use
  Company Number: FR-TEVA-385951USA

PATIENT
  Age: 77 Year
  Sex: Female
  Weight: 69 kg

DRUGS (26)
  1. LEVACT [Suspect]
     Indication: PLASMA CELL MYELOMA
     Dates: start: 20121113
  2. LEVACT [Suspect]
     Dosage: UNKNOWN/D
     Route: 041
     Dates: start: 20121111
  3. LEVACT [Suspect]
     Dosage: UNKNOWN/D
     Dates: start: 20121211
  4. ROCEPHINE [Suspect]
     Indication: URINARY TRACT INFECTION
     Dosage: EVERY SECOND DAY
     Route: 042
     Dates: start: 20121203
  5. ROCEPHINE [Suspect]
     Dosage: EVERY SECOND DAY
     Dates: start: 20121204
  6. ROCEPHINE [Suspect]
     Dates: start: 20121210
  7. VELCADE [Suspect]
     Dosage: UNKNOWN/D
     Route: 058
     Dates: start: 20121105
  8. VELCADE [Suspect]
     Dates: start: 20121108
  9. VELCADE [Suspect]
     Dates: start: 20121217
  10. DEXAMETHASONE [Suspect]
     Dosage: UNKNOWN/D
     Dates: start: 20120926, end: 20120929
  11. DEXAMETHASONE [Suspect]
     Dosage: UNKNOWN/D
     Dates: start: 20121108
  12. ZYLORIC [Suspect]
     Indication: HYPERURICAEMIA
     Dosage: 1 TABLET EVERY SECOND DAY
     Route: 048
     Dates: start: 20121120
  13. CLAMOXYL [Suspect]
     Indication: BETA HAEMOLYTIC STREPTOCOCCAL INFECTION
     Dosage: 1500 MILLIGRAM DAILY;
     Route: 048
     Dates: start: 20121124
  14. CLAMOXYL [Suspect]
     Indication: BRONCHITIS
     Dates: end: 20121203
  15. ZELITREX [Suspect]
     Indication: HERPES ZOSTER
     Dosage: 1 GRAM DAILY;
     Route: 048
     Dates: start: 20121129
  16. ZELITREX [Suspect]
     Dosage: 500 MILLIGRAM DAILY; UID/QD
     Dates: start: 20121205
  17. ZELITREX [Suspect]
     Dosage: 500 MILLIGRAM DAILY; UID/QD
     Dates: start: 20121206
  18. ZELITREX [Suspect]
     Dosage: 500 MILLIGRAM DAILY; UID/QD
     Dates: start: 20121211
  19. CORTANCYL [Concomitant]
     Indication: PLASMA CELL MYELOMA
     Route: 048
  20. LYRICA [Concomitant]
     Indication: AXONAL NEUROPATHY
     Dates: start: 20121211
  21. CARDENSIEL [Concomitant]
     Indication: HYPERTENSION
  22. KARDEGIC [Concomitant]
     Indication: ANGINA PECTORIS
     Dosage: 75 MILLIGRAM DAILY;
  23. DOLIPRANE [Concomitant]
     Indication: PAIN
     Dosage: 1 GRAM DAILY;
     Route: 048
  24. THALIDOMIDE [Concomitant]
     Route: 048
     Dates: start: 20121105, end: 20121202
  25. LOXEN [Concomitant]
     Dosage: 20 MILLIGRAM DAILY;
  26. TAHOR [Concomitant]
     Dosage: 10 MILLIGRAM DAILY;

REACTIONS (1)
  - Coombs negative haemolytic anaemia [Not Recovered/Not Resolved]
